FAERS Safety Report 4790962-5 (Version None)
Quarter: 2005Q4

REPORT INFORMATION
  Report Type: 
  Country: None (occurrence: None)
  Receive Date: 20051005
  Receipt Date: 20050922
  Transmission Date: 20060501
  Serious: Yes (Hospitalization)
  Sender: FDA-Public Use
  Company Number: 2005-BP-16805RO

PATIENT
  Age: 76 Year
  Sex: Female

DRUGS (3)
  1. METHOTREXATE [Suspect]
     Dosage: PO
     Route: 048
  2. ANTIHYPERTENSIVES (ANTIHYPERTENSIVES) [Concomitant]
  3. ORAL HYPOGLYCEMIA AGENT (DRUG USED IN DIABETES) [Concomitant]

REACTIONS (5)
  - DIALYSIS [None]
  - DRUG DISPENSING ERROR [None]
  - HAEMOLYSIS [None]
  - HYPERSENSITIVITY [None]
  - RENAL FAILURE [None]
